FAERS Safety Report 21016952 (Version 1)
Quarter: 2022Q2

REPORT INFORMATION
  Report Type: Spontaneous
  Country: US (occurrence: None)
  Receive Date: 20220627
  Receipt Date: 20220627
  Transmission Date: 20220720
  Serious: No
  Sender: FDA-Public Use
  Company Number: None

PATIENT
  Age: 68 Year
  Sex: Male

DRUGS (1)
  1. REPATHA [Suspect]
     Active Substance: EVOLOCUMAB
     Indication: Hyperlipidaemia
     Dosage: OTHER FREQUENCY : EVERY 14 DAYS;?
     Route: 058
     Dates: start: 20220523, end: 20220627

REACTIONS (4)
  - Muscle spasms [None]
  - Peripheral swelling [None]
  - Peripheral swelling [None]
  - Blood glucose increased [None]

NARRATIVE: CASE EVENT DATE: 20220627
